FAERS Safety Report 5249442-5 (Version None)
Quarter: 2007Q1

REPORT INFORMATION
  Report Type: 
  Country: None (occurrence: None)
  Receive Date: 20070228
  Receipt Date: 20061205
  Transmission Date: 20070707
  Serious: No
  Sender: FDA-Public Use
  Company Number: US-GLAXOSMITHKLINE-A0626022A

PATIENT
  Age: 57 Year
  Sex: Female

DRUGS (3)
  1. VALTREX [Suspect]
     Indication: EAR INFECTION VIRAL
     Dosage: 1MG THREE TIMES PER DAY
     Route: 048
     Dates: start: 20060201
  2. CLARINEX [Concomitant]
  3. ZOLOFT [Concomitant]

REACTIONS (7)
  - ASTHENIA [None]
  - BALANCE DISORDER [None]
  - DIZZINESS [None]
  - DRUG INEFFECTIVE [None]
  - DRUG LEVEL DECREASED [None]
  - PHARMACEUTICAL PRODUCT COMPLAINT [None]
  - SOMNOLENCE [None]
